FAERS Safety Report 20769982 (Version 3)
Quarter: 2022Q2

REPORT INFORMATION
  Report Type: Spontaneous
  Country: US (occurrence: US)
  Receive Date: 20220429
  Receipt Date: 20220608
  Transmission Date: 20220721
  Serious: No
  Sender: FDA-Public Use
  Company Number: US-PFIZER INC-202200619292

PATIENT
  Sex: Female

DRUGS (1)
  1. PAXLOVID [Suspect]
     Active Substance: NIRMATRELVIR\RITONAVIR
     Indication: COVID-19 treatment
     Dosage: UNK, (I TOOK IT FOR ^STRAIGHT^ 3 DAYS)

REACTIONS (9)
  - Condition aggravated [Unknown]
  - Gastric disorder [Unknown]
  - Nausea [Unknown]
  - Headache [Unknown]
  - Dysgeusia [Unknown]
  - Product taste abnormal [Unknown]
  - Pain [Unknown]
  - Pyrexia [Unknown]
  - Abdominal pain upper [Unknown]
